FAERS Safety Report 6011345-6 (Version None)
Quarter: 2008Q4

REPORT INFORMATION
  Report Type: 
  Country: None (occurrence: None)
  Receive Date: 20081216
  Receipt Date: 20081205
  Transmission Date: 20090506
  Serious: Yes (Hospitalization, Other)
  Sender: FDA-Public Use
  Company Number: 235742J08USA

PATIENT
  Age: 47 Year
  Sex: Female

DRUGS (4)
  1. REBIF [Suspect]
     Indication: MULTIPLE SCLEROSIS
     Dosage: 44 MCG, 3 IN 1 WEEKS, SUBCUTANEOUS
     Route: 058
     Dates: start: 20060501
  2. SEROQUEL [Concomitant]
  3. PROVIGIL [Concomitant]
  4. GABAPENTIN [Concomitant]

REACTIONS (2)
  - APPENDICITIS [None]
  - CONVERSION DISORDER [None]
